FAERS Safety Report 4307839-1 (Version None)
Quarter: 2004Q1

REPORT INFORMATION
  Report Type: 
  Country: None (occurrence: None)
  Receive Date: 20040225
  Receipt Date: 20030304
  Transmission Date: 20041129
  Serious: Yes (Hospitalization)
  Sender: FDA-Public Use
  Company Number: WAES 0303USA00302

PATIENT
  Age: 73 Year
  Sex: Male

DRUGS (5)
  1. ZOCOR [Suspect]
     Dosage: 80 MG/PO
     Route: 048
     Dates: start: 20010301
  2. COREG [Concomitant]
  3. ZESTRIL [Concomitant]
  4. ASPIRIN [Concomitant]
  5. PREDNISONE [Concomitant]

REACTIONS (2)
  - RENAL FAILURE [None]
  - RHABDOMYOLYSIS [None]
